FAERS Safety Report 6707167-0 (Version None)
Quarter: 2010Q2

REPORT INFORMATION
  Report Type: 
  Country: None (occurrence: None)
  Receive Date: 20100503
  Receipt Date: 20090415
  Transmission Date: 20101027
  Serious: No
  Sender: FDA-Public Use
  Company Number: US-ASTRAZENECA-2009UW09542

PATIENT
  Sex: Female
  Weight: 60.8 kg

DRUGS (1)
  1. NEXIUM [Suspect]
     Indication: ABDOMINAL PAIN UPPER
     Route: 048

REACTIONS (5)
  - CANDIDIASIS [None]
  - RASH [None]
  - SALIVARY GLAND ENLARGEMENT [None]
  - SIALOADENITIS [None]
  - SWOLLEN TONGUE [None]
